FAERS Safety Report 7825021-8 (Version None)
Quarter: 2011Q4

REPORT INFORMATION
  Report Type: 
  Country: None (occurrence: None)
  Receive Date: 20111019
  Receipt Date: 20110421
  Transmission Date: 20120403
  Serious: No
  Sender: FDA-Public Use
  Company Number: US-BRISTOL-MYERS SQUIBB COMPANY-15640568

PATIENT
  Age: 55 Year
  Sex: Male
  Weight: 125 kg

DRUGS (7)
  1. BYSTOLIC [Concomitant]
  2. MULTI-VITAMIN [Concomitant]
  3. AVALIDE [Suspect]
     Dosage: 1 DF:300/25MG
  4. LOSARTAN POTASSIUM AND HYDROCHLOROTHIAZIDE [Suspect]
     Dosage: 1 DF:100/25MG
  5. VYTORIN [Concomitant]
  6. OMEPRAZOLE [Concomitant]
  7. ASPIRIN [Concomitant]

REACTIONS (1)
  - ARTHRITIS [None]
